FAERS Safety Report 18643497 (Version 1)
Quarter: 2020Q4

REPORT INFORMATION
  Report Type: Spontaneous
  Country: US (occurrence: US)
  Receive Date: 20201219
  Receipt Date: 20201219
  Transmission Date: 20210114
  Serious: Yes (Hospitalization)
  Sender: FDA-Public Use
  Company Number: None

PATIENT
  Sex: Female
  Weight: 90 kg

DRUGS (3)
  1. ALANINE AMINOTRANSFERASE [Concomitant]
  2. CISPLATIN. [Suspect]
     Active Substance: CISPLATIN
  3. UREA NITROGEN [Concomitant]

REACTIONS (4)
  - Dysarthria [None]
  - Nausea [None]
  - Embolism [None]
  - Vomiting [None]

NARRATIVE: CASE EVENT DATE: 20201213
